FAERS Safety Report 20890246 (Version 1)
Quarter: 2022Q2

REPORT INFORMATION
  Report Type: Spontaneous
  Country: IT (occurrence: IT)
  Receive Date: 20220530
  Receipt Date: 20220530
  Transmission Date: 20220720
  Serious: Yes (Other)
  Sender: FDA-Public Use
  Company Number: IT-ATLANTIDE PHARMACEUTICALS AG-2022ATL000037

PATIENT
  Age: 16 Year
  Sex: Female
  Weight: 43 kg

DRUGS (4)
  1. LANSOPRAZOLE [Suspect]
     Active Substance: LANSOPRAZOLE
     Indication: Gastritis erosive
     Dosage: 30 MILLIGRAM, A.M.
     Route: 048
  2. LANSOPRAZOLE [Suspect]
     Active Substance: LANSOPRAZOLE
     Dosage: 15 MILLIGRAM, P.M.
     Route: 048
  3. LITHIUM [Concomitant]
     Active Substance: LITHIUM
     Indication: Phelan-McDermid syndrome
     Dosage: 300 MILLIGRAM, TID
     Route: 065
  4. PERICIAZINE [Concomitant]
     Active Substance: PERICIAZINE
     Indication: Sleep disorder
     Dosage: 10 MILLIGRAM, AT BEDTIME
     Route: 065

REACTIONS (2)
  - Catatonia [Recovered/Resolved]
  - Depression [Recovered/Resolved]
